FAERS Safety Report 10238447 (Version 2)
Quarter: 2014Q3

REPORT INFORMATION
  Report Type: Report from Study
  Country: JP (occurrence: JP)
  Receive Date: 20140616
  Receipt Date: 20140714
  Transmission Date: 20150326
  Serious: Yes (Hospitalization)
  Sender: FDA-Public Use
  Company Number: JP-EISAI-201401770

PATIENT
  Age: 53 Year
  Sex: Male
  Weight: 38 kg

DRUGS (13)
  1. ETIZOLAM [Concomitant]
     Active Substance: ETIZOLAM
     Indication: INSOMNIA RELATED TO ANOTHER MENTAL CONDITION
     Dates: end: 20140516
  2. NOVOLIN R [Concomitant]
     Active Substance: INSULIN HUMAN
     Indication: DIABETES MELLITUS
     Dates: start: 20140519
  3. MEBUCOLON [Concomitant]
     Indication: IRRITABLE BOWEL SYNDROME
     Dates: end: 20140516
  4. MEILAX [Concomitant]
     Active Substance: ETHYL LOFLAZEPATE
     Indication: BIPOLAR DISORDER
     Dates: end: 20140516
  5. BIO-THREE [Concomitant]
     Active Substance: HERBALS
     Indication: IRRITABLE BOWEL SYNDROME
     Dates: end: 20140516
  6. FLUNITRAZEPAM [Concomitant]
     Active Substance: FLUNITRAZEPAM
     Indication: INSOMNIA RELATED TO ANOTHER MENTAL CONDITION
     Dates: end: 20140516
  7. PANCREL [Concomitant]
     Indication: PANCREATITIS CHRONIC
     Dates: end: 20140516
  8. LITHIUM CARBONATE. [Concomitant]
     Active Substance: LITHIUM CARBONATE
     Indication: BIPOLAR DISORDER
     Dates: end: 20140516
  9. LUNESTA [Suspect]
     Active Substance: ESZOPICLONE
     Indication: BIPOLAR DISORDER
     Route: 048
     Dates: start: 20140425, end: 20140516
  10. LAMICTAL [Suspect]
     Active Substance: LAMOTRIGINE
     Indication: BIPOLAR DISORDER
     Dates: end: 20140516
  11. LOPERAMIDE HYDROCHLORIDE. [Concomitant]
     Active Substance: LOPERAMIDE HYDROCHLORIDE
     Indication: IRRITABLE BOWEL SYNDROME
     Dates: end: 20140516
  12. FAMOTIDINE. [Concomitant]
     Active Substance: FAMOTIDINE
     Indication: GASTRITIS
     Dates: end: 20140516
  13. NOVORAPID [Concomitant]
     Active Substance: INSULIN ASPART
     Indication: DIABETES MELLITUS
     Dates: end: 20140518

REACTIONS (5)
  - Decreased appetite [Recovered/Resolved]
  - Decubitus ulcer [Not Recovered/Not Resolved]
  - Dehydration [Recovered/Resolved]
  - Toxicity to various agents [Recovered/Resolved]
  - Pneumonia aspiration [Not Recovered/Not Resolved]

NARRATIVE: CASE EVENT DATE: 20140516
